FAERS Safety Report 9928693 (Version 3)
Quarter: 2014Q2

REPORT INFORMATION
  Report Type: Spontaneous
  Country: JP (occurrence: None)
  Receive Date: 20140225
  Receipt Date: 20140501
  Transmission Date: 20141212
  Serious: Yes (Life-Threatening)
  Sender: FDA-Public Use
  Company Number: JP-20140041

PATIENT
  Age: 7 Decade
  Sex: Male

DRUGS (2)
  1. LIPIODOL ULTRA-FLUIDE [Suspect]
     Indication: THERAPEUTIC EMBOLISATION
     Route: 013
  2. IA-CALL (CISPLATIN) (CISPLATIN) [Suspect]
     Indication: THERAPEUTIC EMBOLISATION

REACTIONS (2)
  - Anaphylactic reaction [None]
  - Off label use [None]
